FAERS Safety Report 10732062 (Version 1)
Quarter: 2015Q1

REPORT INFORMATION
  Report Type: Spontaneous
  Country: US (occurrence: None)
  Receive Date: 20150121
  Receipt Date: 20150121
  Transmission Date: 20150721
  Serious: Yes (Other)
  Sender: FDA-Public Use
  Company Number: None

PATIENT
  Age: 54 Year
  Sex: Female
  Weight: 89.36 kg

DRUGS (2)
  1. JUBLIA [Suspect]
     Active Substance: EFINACONAZOLE
     Indication: NAIL DISCOLOURATION
     Dosage: ONCE PER DAY APPLY ONCE DAILY TOE NAILS AND TOE SKIN 4 WEEKS
  2. JUBLIA [Suspect]
     Active Substance: EFINACONAZOLE
     Indication: FUNGAL INFECTION
     Dosage: ONCE PER DAY APPLY ONCE DAILY TOE NAILS AND TOE SKIN 4 WEEKS

REACTIONS (4)
  - Pain [None]
  - Gait disturbance [None]
  - Sleep disorder due to general medical condition, insomnia type [None]
  - Application site pain [None]

NARRATIVE: CASE EVENT DATE: 20150116
